FAERS Safety Report 4284154-6 (Version None)
Quarter: 2004Q1

REPORT INFORMATION
  Report Type: 
  Country: None (occurrence: None)
  Receive Date: 20040203
  Receipt Date: 20040109
  Transmission Date: 20041129
  Serious: Yes (Other)
  Sender: FDA-Public Use
  Company Number: JP-GLAXOSMITHKLINE-B0319954A

PATIENT
  Age: 49 Year
  Sex: Male

DRUGS (1)
  1. AUGMENTIN [Suspect]
     Indication: CARBUNCLE
     Dosage: 1000MG PER DAY
     Route: 048
     Dates: start: 20030506, end: 20030507

REACTIONS (1)
  - ERYTHEMA [None]
